FAERS Safety Report 4363846-4 (Version None)
Quarter: 2004Q2

REPORT INFORMATION
  Report Type: 
  Country: None (occurrence: None)
  Receive Date: 20040520
  Receipt Date: 20040520
  Transmission Date: 20050107
  Serious: Yes (Life-Threatening, Hospitalization)
  Sender: FDA-Public Use
  Company Number: None

PATIENT
  Age: 83 Year
  Sex: Male
  Weight: 69.8 kg

DRUGS (1)
  1. WARFARIN SODIUM [Suspect]
     Indication: ATRIAL FIBRILLATION
     Dosage: 2 MG QD ORAL
     Route: 048
     Dates: start: 20031027, end: 20040216

REACTIONS (4)
  - COLONIC POLYP [None]
  - DIVERTICULUM INTESTINAL [None]
  - HAEMORRHOIDS [None]
  - LOWER GASTROINTESTINAL HAEMORRHAGE [None]
